FAERS Safety Report 8434058 (Version 2)
Quarter: 2013Q2

REPORT INFORMATION
  Report Type: Spontaneous
  Country: US (occurrence: US)
  Receive Date: 20120229
  Receipt Date: 20130417
  Transmission Date: 20140414
  Serious: Yes (Other)
  Sender: FDA-Public Use
  Company Number: US-RB-037667-12

PATIENT
  Age: 23 Year
  Sex: Female
  Weight: 59.4 kg

DRUGS (6)
  1. SUBOXONE FILM [Suspect]
     Indication: DRUG DEPENDENCE
     Dosage: 2 MG EVERY 15 MINUTES UP TO 8 MG
     Route: 060
     Dates: start: 20120216, end: 20120216
  2. SUBOXONE FILM [Suspect]
     Route: 060
     Dates: start: 20120217
  3. SUBOXONE FILM [Suspect]
     Dosage: SUBOXONE FILM; DOSING DETAILS UNKNOWN
     Route: 065
     Dates: start: 20121025
  4. BENZODIAZEPINES [Suspect]
     Indication: ANXIETY
     Route: 048
  5. ALPRAZOLAM [Suspect]
     Indication: PRODUCT USED FOR UNKNOWN INDICATION
     Dosage: DOSING DETAILS UNKNOWN; STOPED ABRUPTLY
     Route: 065
  6. SUBUTEX [Suspect]
     Indication: DRUG DEPENDENCE
     Dosage: DOSING DETAILS UNKNOWN
     Route: 065

REACTIONS (3)
  - Off label use [Recovered/Resolved]
  - Convulsion [Recovered/Resolved]
  - Exposure during pregnancy [Unknown]
